FAERS Safety Report 4885921-8 (Version None)
Quarter: 2006Q1

REPORT INFORMATION
  Report Type: 
  Country: None (occurrence: None)
  Receive Date: 20060120
  Receipt Date: 20060109
  Transmission Date: 20060701
  Serious: Yes (Other)
  Sender: FDA-Public Use
  Company Number: AU-ROCHE-431085

PATIENT
  Weight: 1.4 kg

DRUGS (1)
  1. ROACCUTANE [Suspect]
     Indication: ACNE

REACTIONS (7)
  - DRUG EXPOSURE DURING PREGNANCY [None]
  - PLACENTAL DISORDER [None]
  - PLACENTAL INFARCTION [None]
  - PREGNANCY [None]
  - PREMATURE LABOUR [None]
  - RETROPLACENTAL HAEMATOMA [None]
  - STILLBIRTH [None]
